FAERS Safety Report 7615833-8 (Version None)
Quarter: 2011Q3

REPORT INFORMATION
  Report Type: 
  Country: None (occurrence: None)
  Receive Date: 20110711
  Receipt Date: 20110624
  Transmission Date: 20111222
  Serious: Yes (Other)
  Sender: FDA-Public Use
  Company Number: 2011MA008037

PATIENT
  Age: 39 Year

DRUGS (4)
  1. RIFAMPIN [Suspect]
     Indication: TUBERCULOSIS
  2. ETHAMBUTOL HYDROCHLORIDE [Suspect]
     Indication: TUBERCULOSIS
  3. PYRAZINAMIDE [Suspect]
     Indication: TUBERCULOSIS
  4. STREPTOMYCIN [Suspect]
     Indication: TUBERCULOSIS

REACTIONS (2)
  - ANAPHYLACTIC REACTION [None]
  - PYREXIA [None]
